FAERS Safety Report 15430552 (Version 1)
Quarter: 2018Q3

REPORT INFORMATION
  Report Type: Spontaneous
  Country: US (occurrence: US)
  Receive Date: 20180926
  Receipt Date: 20180926
  Transmission Date: 20181010
  Serious: Yes (Hospitalization, Disabling)
  Sender: FDA-Public Use
  Company Number: US-JNJFOC-20180926581

PATIENT
  Age: 37 Year
  Sex: Male

DRUGS (1)
  1. INVOKANA [Suspect]
     Active Substance: CANAGLIFLOZIN
     Indication: PRODUCT USED FOR UNKNOWN INDICATION
     Route: 048

REACTIONS (6)
  - Osteomyelitis [Recovering/Resolving]
  - Limb amputation [Unknown]
  - Neuropathic ulcer [Recovering/Resolving]
  - Cellulitis [Recovering/Resolving]
  - Soft tissue necrosis [Recovering/Resolving]
  - Wound infection [Recovering/Resolving]

NARRATIVE: CASE EVENT DATE: 201405
